FAERS Safety Report 10065594 (Version 1)
Quarter: 2014Q2

REPORT INFORMATION
  Report Type: Spontaneous
  Country: US (occurrence: US)
  Receive Date: 20140408
  Receipt Date: 20140408
  Transmission Date: 20141212
  Serious: No
  Sender: FDA-Public Use
  Company Number: US-SA-2013SA110126

PATIENT
  Age: 65 Year
  Sex: Male

DRUGS (1)
  1. ELITEK [Suspect]
     Route: 065

REACTIONS (2)
  - Burning sensation [Unknown]
  - Pain [Unknown]
